FAERS Safety Report 4458960-9 (Version None)
Quarter: 2004Q3

REPORT INFORMATION
  Report Type: 
  Country: None (occurrence: None)
  Receive Date: 20040923
  Receipt Date: 20040923
  Transmission Date: 20050211
  Serious: Yes (Other)
  Sender: FDA-Public Use
  Company Number: None

PATIENT
  Age: 26 Year
  Sex: Female
  Weight: 111.1313 kg

DRUGS (1)
  1. LUPRON [Suspect]
     Indication: ENDOMETRIOSIS
     Dosage: 3.75 MGM IM
     Route: 030
     Dates: start: 20010901, end: 20020201

REACTIONS (7)
  - ARTHROPATHY [None]
  - GAIT DISTURBANCE [None]
  - GASTRITIS [None]
  - HYPOAESTHESIA [None]
  - LOCALISED OSTEOARTHRITIS [None]
  - MUSCLE TWITCHING [None]
  - NERVOUS SYSTEM DISORDER [None]
